FAERS Safety Report 9012665 (Version 1)
Quarter: 2013Q1

REPORT INFORMATION
  Report Type: Spontaneous
  Country: GB (occurrence: GB)
  Receive Date: 20130114
  Receipt Date: 20130114
  Transmission Date: 20140127
  Serious: Yes (Hospitalization)
  Sender: FDA-Public Use
  Company Number: GB-ASTRAZENECA-2012SE89328

PATIENT
  Sex: 0

DRUGS (1)
  1. SYNAGIS [Suspect]
     Indication: ILL-DEFINED DISORDER
     Route: 030

REACTIONS (2)
  - Haemophilus test positive [Unknown]
  - Respiratory syncytial virus test positive [Unknown]
